FAERS Safety Report 8993155 (Version 1)
Quarter: 2013Q1

REPORT INFORMATION
  Report Type: Report from Study
  Country: GB (occurrence: GB)
  Receive Date: 20130102
  Receipt Date: 20130102
  Transmission Date: 20140127
  Serious: Yes (Other)
  Sender: FDA-Public Use
  Company Number: GB-ROCHE-1175314

PATIENT
  Age: 44 Year
  Sex: Female

DRUGS (3)
  1. CAPECITABINE [Suspect]
     Indication: COLORECTAL CANCER
     Route: 065
     Dates: start: 20080118
  2. OXALIPLATIN [Suspect]
     Indication: COLORECTAL CANCER
     Route: 065
     Dates: start: 20080118
  3. CETUXIMAB [Suspect]
     Indication: COLORECTAL CANCER
     Route: 065
     Dates: start: 20080118

REACTIONS (1)
  - Gastrointestinal fistula [Recovered/Resolved with Sequelae]
